FAERS Safety Report 10082621 (Version 1)
Quarter: 2014Q2

REPORT INFORMATION
  Report Type: Spontaneous
  Country: GB (occurrence: GB)
  Receive Date: 20140416
  Receipt Date: 20140416
  Transmission Date: 20141212
  Serious: Yes (Death)
  Sender: FDA-Public Use
  Company Number: GB-MYLANLABS-2014S1008114

PATIENT
  Age: 50 Year
  Sex: Male
  Weight: 110 kg

DRUGS (8)
  1. IRINOTECAN [Suspect]
     Indication: COLON CANCER METASTATIC
     Dates: start: 20131022, end: 20131022
  2. IRINOTECAN [Suspect]
     Indication: COLON CANCER METASTATIC
     Dates: start: 20130812, end: 20130812
  3. AFLIBERCEPT [Suspect]
     Indication: COLON CANCER METASTATIC
     Route: 042
     Dates: start: 20130910, end: 20130910
  4. AFLIBERCEPT [Suspect]
     Indication: COLON CANCER METASTATIC
     Route: 042
     Dates: start: 20130812, end: 20130812
  5. FLUOROURACIL [Suspect]
     Indication: COLON CANCER METASTATIC
     Route: 042
     Dates: start: 20130812, end: 20130812
  6. FLUOROURACIL [Suspect]
     Indication: COLON CANCER METASTATIC
     Route: 042
     Dates: start: 20131022, end: 20131022
  7. FOLINIC ACID [Suspect]
     Indication: COLON CANCER METASTATIC
     Route: 042
     Dates: start: 20130812, end: 20130812
  8. FOLINIC ACID [Suspect]
     Indication: COLON CANCER METASTATIC
     Route: 042
     Dates: start: 20131022, end: 20131022

REACTIONS (2)
  - Neoplasm progression [Fatal]
  - Abdominal pain [Recovered/Resolved]
